FAERS Safety Report 5967880-X (Version None)
Quarter: 2008Q4

REPORT INFORMATION
  Report Type: 
  Country: None (occurrence: None)
  Receive Date: 20081126
  Receipt Date: 20081114
  Transmission Date: 20090506
  Serious: Yes (Other)
  Sender: FDA-Public Use
  Company Number: US-BIOGENIDEC-2008BI028990

PATIENT
  Age: 44 Year
  Sex: Male

DRUGS (1)
  1. TYSABRI [Suspect]
     Indication: CROHN'S DISEASE
     Route: 042
     Dates: start: 20080515

REACTIONS (3)
  - DEPRESSION [None]
  - FREQUENT BOWEL MOVEMENTS [None]
  - TESTICULAR SEMINOMA (PURE) STAGE I [None]
